FAERS Safety Report 19069308 (Version 1)
Quarter: 2021Q1

REPORT INFORMATION
  Report Type: Spontaneous
  Country: BR (occurrence: BR)
  Receive Date: 20210329
  Receipt Date: 20210329
  Transmission Date: 20210420
  Serious: Yes (Other)
  Sender: FDA-Public Use
  Company Number: BR-BAXTER-2021BAX005587

PATIENT
  Age: 45 Year
  Sex: Female
  Weight: 64 kg

DRUGS (20)
  1. GENUXAL [Suspect]
     Active Substance: CYCLOPHOSPHAMIDE
     Indication: NON-HODGKIN^S LYMPHOMA
     Dosage: RECEIVED FIRST CYCLE OF CHEMOTHERAPY, GENUXAL 1200 MG + 0.9% SALINE SOLUTION 500 ML
     Route: 065
     Dates: start: 20210107, end: 20210107
  2. SALINE SOLUTION [Suspect]
     Active Substance: SODIUM CHLORIDE
     Dosage: RECEIVED SECOND CYCLE OF CHEMOTHERAPY, 0.9% SALINE SOLUTION 500 ML + GENUXAL 1200 MG
     Route: 065
  3. SALINE SOLUTION [Suspect]
     Active Substance: SODIUM CHLORIDE
     Dosage: RECEIVED FOURTH CYCLE OF CHEMOTHERAPY, 0.9% SALINE SOLUTION 500 ML + GENUXAL 1200 MG
     Route: 065
     Dates: start: 20210315, end: 20210315
  4. GENUXAL [Suspect]
     Active Substance: CYCLOPHOSPHAMIDE
     Dosage: RECEIVED FOURTH CYCLE OF CHEMOTHERAPY, GENUXAL 1200 MG + 0.9% SALINE SOLUTION 500 ML
     Route: 065
     Dates: start: 20210315, end: 20210315
  5. FAULDOXO [Suspect]
     Active Substance: DOXORUBICIN HYDROCHLORIDE
     Dosage: RECEIVED THIRD CYCLE OF CHEMOTHERAPY
     Route: 065
     Dates: start: 20210222, end: 20210222
  6. MABTHERA [Suspect]
     Active Substance: RITUXIMAB
     Indication: NON-HODGKIN^S LYMPHOMA
     Dosage: RECEIVED FIRST CYCLE OF CHEMOTHERAPY
     Route: 065
     Dates: start: 20210107, end: 20210107
  7. FAULDVINCRI [Suspect]
     Active Substance: VINCRISTINE SULFATE
     Dosage: RECEIVED SECOND CYCLE OF CHEMOTHERAPY
     Route: 065
  8. MABTHERA [Suspect]
     Active Substance: RITUXIMAB
     Dosage: RECEIVED THIRD CYCLE OF CHEMOTHERAPY
     Route: 065
     Dates: start: 20210222, end: 20210222
  9. FAULDOXO [Suspect]
     Active Substance: DOXORUBICIN HYDROCHLORIDE
     Indication: NON-HODGKIN^S LYMPHOMA
     Dosage: RECEIVED FIRST CYCLE OF CHEMOTHERAPY
     Route: 065
     Dates: start: 20210107, end: 20210107
  10. FAULDOXO [Suspect]
     Active Substance: DOXORUBICIN HYDROCHLORIDE
     Dosage: RECEIVED SECOND CYCLE OF CHEMOTHERAPY
     Route: 065
  11. SALINE SOLUTION [Suspect]
     Active Substance: SODIUM CHLORIDE
     Indication: MEDICATION DILUTION
     Dosage: RECEIVED FIRST CYCLE OF CHEMOTHERAPY, 0.9% SALINE SOLUTION 500 ML + GENUXAL 1200 MG
     Route: 065
     Dates: start: 20210107, end: 20210107
  12. GENUXAL [Suspect]
     Active Substance: CYCLOPHOSPHAMIDE
     Dosage: RECEIVED SECOND CYCLE OF CHEMOTHERAPY, GENUXAL 1200 MG + 0.9% SALINE SOLUTION 500 ML
     Route: 065
  13. FAULDVINCRI [Suspect]
     Active Substance: VINCRISTINE SULFATE
     Dosage: RECEIVED THIRD CYCLE OF CHEMOTHERAPY
     Route: 065
     Dates: start: 20210222, end: 20210222
  14. GENUXAL [Suspect]
     Active Substance: CYCLOPHOSPHAMIDE
     Dosage: RECEIVED THIRD CYCLE OF CHEMOTHERAPY, GENUXAL 1200 MG + 0.9% SALINE SOLUTION 500 ML
     Route: 065
     Dates: start: 20210222, end: 20210222
  15. FAULDOXO [Suspect]
     Active Substance: DOXORUBICIN HYDROCHLORIDE
     Dosage: RECEIVED FOURTH CYCLE OF CHEMOTHERAPY
     Route: 065
     Dates: start: 20210315, end: 20210315
  16. FAULDVINCRI [Suspect]
     Active Substance: VINCRISTINE SULFATE
     Indication: NON-HODGKIN^S LYMPHOMA
     Dosage: RECEIVED FIRST CYCLE OF CHEMOTHERAPY
     Route: 065
     Dates: start: 20210107, end: 20210107
  17. FAULDVINCRI [Suspect]
     Active Substance: VINCRISTINE SULFATE
     Dosage: RECEIVED FOURTH CYCLE OF CHEMOTHERAPY
     Route: 065
     Dates: start: 20210315, end: 20210315
  18. MABTHERA [Suspect]
     Active Substance: RITUXIMAB
     Dosage: RECEIVED SECOND CYCLE OF CHEMOTHERAPY
     Route: 065
  19. MABTHERA [Suspect]
     Active Substance: RITUXIMAB
     Dosage: RECEIVED FOURTH CYCLE OF CHEMOTHERAPY
     Route: 065
     Dates: start: 20210315, end: 20210315
  20. SALINE SOLUTION [Suspect]
     Active Substance: SODIUM CHLORIDE
     Dosage: RECEIVED THIRD CYCLE OF CHEMOTHERAPY, 0.9% SALINE SOLUTION 500 ML + GENUXAL 1200 MG
     Route: 065
     Dates: start: 20210222, end: 20210222

REACTIONS (3)
  - Lacrimation increased [Recovered/Resolved]
  - Nasal pruritus [Recovered/Resolved]
  - Headache [Recovered/Resolved]

NARRATIVE: CASE EVENT DATE: 20210315
